FAERS Safety Report 8465533-X (Version None)
Quarter: 2012Q2

REPORT INFORMATION
  Report Type: 
  Country: None (occurrence: None)
  Receive Date: 20120626
  Receipt Date: 20120618
  Transmission Date: 20120825
  Serious: Yes (Hospitalization, Other)
  Sender: FDA-Public Use
  Company Number: US-NOVOPROD-351321

PATIENT
  Age: 14 Year
  Sex: Female
  Weight: 28.5 kg

DRUGS (1)
  1. NORDITROPIN FLEXPRO [Suspect]
     Indication: DWARFISM
     Dosage: 1.4 MG, 3 X WEEKLY
     Route: 058
     Dates: start: 20060101, end: 20120418

REACTIONS (1)
  - BONE SARCOMA [None]
